FAERS Safety Report 4840026-7 (Version None)
Quarter: 2005Q4

REPORT INFORMATION
  Report Type: 
  Country: None (occurrence: None)
  Receive Date: 20051125
  Receipt Date: 20051109
  Transmission Date: 20060501
  Serious: Yes (Other)
  Sender: FDA-Public Use
  Company Number: DEU-2005-0001717

PATIENT
  Age: 49 Year
  Sex: Female

DRUGS (8)
  1. OXYGESIC 5 MG (OXYCODONE HYDROCHLORIDE) CR TABLET [Suspect]
     Indication: PAIN
     Dosage: 5 MG, BID, ORAL
     Route: 048
     Dates: start: 20050921, end: 20050926
  2. LEVOTHYROXINE SODIUM [Concomitant]
  3. TRIAMPUR (HYDROCHLOROTHIAZIDE, TRIAMTERENE) [Concomitant]
  4. PANTOPRAZOLE SODIUM [Concomitant]
  5. VENALOT (RUTOSIDE, MELILOT) [Concomitant]
  6. FOLIC ACID [Concomitant]
  7. SPIRULINA (SPIRULINA) [Concomitant]
  8. VITAMINE C (ASCORBIC ACID) [Concomitant]

REACTIONS (9)
  - ANGINA PECTORIS [None]
  - CARDIAC FAILURE [None]
  - CARDIOVASCULAR DISORDER [None]
  - CIRCULATORY COLLAPSE [None]
  - DRUG WITHDRAWAL SYNDROME [None]
  - HEART RATE INCREASED [None]
  - HYPERHIDROSIS [None]
  - SOCIAL AVOIDANT BEHAVIOUR [None]
  - UNDERDOSE [None]
